FAERS Safety Report 5647467-9 (Version None)
Quarter: 2008Q1

REPORT INFORMATION
  Report Type: 
  Country: None (occurrence: None)
  Receive Date: 20080303
  Receipt Date: 20080111
  Transmission Date: 20080703
  Serious: Yes (Hospitalization, Other)
  Sender: FDA-Public Use
  Company Number: IE-NOVOPROD-270272

PATIENT
  Sex: Female
  Weight: 114.7 kg

DRUGS (8)
  1. NOVOLOG MIX 70/30 [Suspect]
     Indication: TYPE 2 DIABETES MELLITUS
     Dosage: 60 IU, QD
     Route: 058
     Dates: start: 20061001
  2. GLUCOPHAGE [Concomitant]
     Dosage: 3400 MG, QD
     Route: 048
  3. ATORVASTATIN CALCIUM [Concomitant]
     Dosage: 20 MG, QD
     Route: 048
  4. LISINOPRIL [Concomitant]
     Dosage: 20 MG, QD
     Route: 048
  5. BISOPROLOL FUMARATE [Concomitant]
     Dosage: 2.5 MG, QD
     Route: 048
  6. AMLODIPINE [Concomitant]
     Dosage: 10 MG, QD
     Route: 048
  7. ASPIRIN [Concomitant]
     Dosage: 75 MG, QD
     Route: 048
  8. LEVOTHYROXINE SODIUM [Concomitant]
     Dosage: 135 MG, QD
     Route: 048

REACTIONS (1)
  - HUMERUS FRACTURE [None]
